FAERS Safety Report 5061029-6 (Version None)
Quarter: 2006Q3

REPORT INFORMATION
  Report Type: 
  Country: None (occurrence: None)
  Receive Date: 20060725
  Receipt Date: 20060710
  Transmission Date: 20061208
  Serious: Yes (Other)
  Sender: FDA-Public Use
  Company Number: US-ROCHE-454353

PATIENT
  Age: 47 Year
  Sex: Male

DRUGS (4)
  1. NAPROXEN [Suspect]
     Indication: PAIN
     Route: 048
     Dates: start: 20030506
  2. LISINOPRIL AND HYDROCHLOROTHIAZIDE [Concomitant]
     Dosage: DOSAGE: 20/12.5 MG TWICE DAILY
  3. NEXIUM [Concomitant]
  4. ZOLOFT [Concomitant]
     Route: 048

REACTIONS (12)
  - ABDOMINAL PAIN [None]
  - ABSCESS [None]
  - BLOOD PRESSURE INCREASED [None]
  - DIVERTICULAR FISTULA [None]
  - GASTRIC DISORDER [None]
  - HAEMATOMA [None]
  - INFECTION [None]
  - LARGE INTESTINE PERFORATION [None]
  - NIGHT SWEATS [None]
  - RECTAL HAEMORRHAGE [None]
  - RENAL CYST [None]
  - STRESS AT WORK [None]
